FAERS Safety Report 4315575-0 (Version None)
Quarter: 2004Q1

REPORT INFORMATION
  Report Type: 
  Country: None (occurrence: None)
  Receive Date: 20040311
  Receipt Date: 20040311
  Transmission Date: 20041129
  Serious: Yes (Hospitalization)
  Sender: FDA-Public Use
  Company Number: None

PATIENT
  Age: 72 Year
  Sex: Male
  Weight: 88.6782 kg

DRUGS (2)
  1. CASODEX (BIUCALUTAMIDE) [Suspect]
     Indication: PROSTATE CANCER
     Dosage: 150 MG PO DAILY
     Route: 048
     Dates: start: 20020501, end: 20030617
  2. PLACEBO [Suspect]

REACTIONS (5)
  - COLON ADENOMA [None]
  - GASTRITIS [None]
  - GASTROINTESTINAL HAEMORRHAGE [None]
  - HAEMORRHOIDS [None]
  - HIATUS HERNIA [None]
